FAERS Safety Report 8305872-6 (Version None)
Quarter: 2012Q1

REPORT INFORMATION
  Report Type: 
  Country: None (occurrence: None)
  Receive Date: 20120326
  Receipt Date: 20110805
  Transmission Date: 20120608
  Serious: Yes (Other)
  Sender: FDA-Public Use
  Company Number: PHEH2011US00877

PATIENT
  Age: 53 Year
  Sex: Female

DRUGS (20)
  1. VIT B-COMPLEX (CALCIUM PANTOTHENATE, NICOTINAMIDE, PYRIDOXINE HYDROCHL [Concomitant]
  2. FOLIC ACID [Concomitant]
  3. MULTI-VITAMINS (CALCIUM PANTOTHENATE, FOLIC ACID, VITAMINS NOS) [Concomitant]
  4. ESTER-C (CALCIUM ASCORBATE) [Concomitant]
  5. INSULIN [Concomitant]
  6. TROGLITAZONE (TROGLITAZONE) [Concomitant]
  7. HYDROCHLOROTHIAZIDE [Concomitant]
  8. REPAGLINIDE [Concomitant]
  9. ADVAIR DISKUS (FLUTICASONE PROPRIONATE, SALMETEROL XINAFOATE) [Concomitant]
  10. POTASSIUM CHLORIDE [Concomitant]
  11. ALPHA GLUCOSIDASE INHIBITORS (NO INGREDIENTS/SUBSTANCES) [Concomitant]
  12. TASIGNA [Suspect]
     Indication: CHRONIC MYELOID LEUKAEMIA
     Dosage: 300 MG, BID, ORAL, 300 MG, QD, ORAL, 300 MG, AM, ORAL, 150 MG, PM, ORAL, 150 MG, BID, ORAL
     Route: 048
     Dates: start: 20110519
  13. TASIGNA [Suspect]
     Indication: CHRONIC MYELOID LEUKAEMIA
     Dosage: 300 MG, BID, ORAL, 300 MG, QD, ORAL, 300 MG, AM, ORAL, 150 MG, PM, ORAL, 150 MG, BID, ORAL
     Route: 048
     Dates: start: 20110415
  14. TASIGNA [Suspect]
     Indication: CHRONIC MYELOID LEUKAEMIA
     Dosage: 300 MG, BID, ORAL, 300 MG, QD, ORAL, 300 MG, AM, ORAL, 150 MG, PM, ORAL, 150 MG, BID, ORAL
     Route: 048
     Dates: start: 20110510
  15. TASIGNA [Suspect]
     Indication: CHRONIC MYELOID LEUKAEMIA
     Dosage: 300 MG, BID, ORAL, 300 MG, QD, ORAL, 300 MG, AM, ORAL, 150 MG, PM, ORAL, 150 MG, BID, ORAL
     Route: 048
     Dates: start: 20110519
  16. CALCIUM CARBONATE [Concomitant]
  17. AVANDAMET (METFORMIN HYDROCHLORIDE, ROSIGLITAZONE MALEATE) [Concomitant]
  18. SULFONYL UREA DERIVATIVES (NO INGREDIENTS/SUBSTANCES) [Concomitant]
  19. METFORMIN HCL [Concomitant]
  20. ALDACTONE [Concomitant]

REACTIONS (3)
  - NAUSEA [None]
  - TRANSAMINASES INCREASED [None]
  - HEPATITIS [None]
